FAERS Safety Report 7326649-4 (Version None)
Quarter: 2011Q1

REPORT INFORMATION
  Report Type: 
  Country: None (occurrence: None)
  Receive Date: 20110302
  Receipt Date: 20110224
  Transmission Date: 20110831
  Serious: Yes (Death)
  Sender: FDA-Public Use
  Company Number: BR-ACTELION-A-CH2011-45629

PATIENT
  Sex: Male

DRUGS (1)
  1. ZAVESCA [Suspect]
     Dosage: UNK , UNK
     Route: 048

REACTIONS (3)
  - DECUBITUS ULCER [None]
  - CARDIAC ARREST [None]
  - SEPSIS [None]
